FAERS Safety Report 9587266 (Version 1)
Quarter: 2013Q4

REPORT INFORMATION
  Report Type: Spontaneous
  Country: US (occurrence: US)
  Receive Date: 20131003
  Receipt Date: 20131003
  Transmission Date: 20140711
  Serious: Yes (Hospitalization)
  Sender: FDA-Public Use
  Company Number: US-VIROPHARMA INCORPORATED-20130920CINRY5026

PATIENT
  Age: 34 Year
  Sex: Female

DRUGS (3)
  1. CINRYZE (C1 ESTERASE INHIBITOR (HUMAN)) [Suspect]
     Indication: HEREDITARY ANGIOEDEMA
  2. CINRYZE (C1 ESTERASE INHIBITOR (HUMAN)) [Suspect]
     Indication: PROPHYLAXIS
  3. FIRAZYR [Concomitant]
     Indication: HEREDITARY ANGIOEDEMA

REACTIONS (2)
  - Renal stone removal [Recovered/Resolved]
  - Hereditary angioedema [Recovered/Resolved]
